FAERS Safety Report 7838052-9 (Version None)
Quarter: 2011Q4

REPORT INFORMATION
  Report Type: 
  Country: None (occurrence: None)
  Receive Date: 20111024
  Receipt Date: 20111019
  Transmission Date: 20120403
  Serious: Yes (Other)
  Sender: FDA-Public Use
  Company Number: US-BAYER-2011-101519

PATIENT
  Age: 23 Year
  Sex: Male
  Weight: 74.376 kg

DRUGS (2)
  1. MAGNEVIST [Suspect]
     Indication: NUCLEAR MAGNETIC RESONANCE IMAGING
     Dosage: 9 ML, ONCE
     Route: 042
     Dates: start: 20111019, end: 20111019
  2. MAGNEVIST [Suspect]
     Indication: PAIN

REACTIONS (1)
  - LOSS OF CONSCIOUSNESS [None]
